FAERS Safety Report 6121133-8 (Version None)
Quarter: 2009Q1

REPORT INFORMATION
  Report Type: 
  Country: None (occurrence: None)
  Receive Date: 20090317
  Receipt Date: 20090306
  Transmission Date: 20090719
  Serious: Yes (Hospitalization)
  Sender: FDA-Public Use
  Company Number: A0773202A

PATIENT
  Age: 75 Year
  Sex: Male
  Weight: 60.9 kg

DRUGS (7)
  1. AVANDIA [Suspect]
     Indication: DIABETES MELLITUS
     Dosage: 4MG TWICE PER DAY
     Route: 048
     Dates: start: 19991113
  2. DIOVAN [Concomitant]
  3. DILTIAZEM [Concomitant]
  4. GEMFIBROZIL [Concomitant]
  5. MAGNESIUM OXIDE [Concomitant]
  6. TEMAZEPAM [Concomitant]
  7. CARTIA XT [Concomitant]

REACTIONS (1)
  - CEREBROVASCULAR ACCIDENT [None]
